FAERS Safety Report 21335884 (Version 2)
Quarter: 2022Q4

REPORT INFORMATION
  Report Type: Spontaneous
  Country: US (occurrence: US)
  Receive Date: 20220915
  Receipt Date: 20221111
  Transmission Date: 20230113
  Serious: No
  Sender: FDA-Public Use
  Company Number: US-NOVARTISTESTPH-NVSC2022US207361

PATIENT
  Sex: Female

DRUGS (1)
  1. XIIDRA [Suspect]
     Active Substance: LIFITEGRAST
     Indication: Product used for unknown indication
     Dosage: 1 DRP, BID (1 DROP EACH EYE, 2 X DAY)
     Route: 065
     Dates: start: 20220901

REACTIONS (2)
  - Product dose omission issue [Unknown]
  - Incorrect dose administered [Unknown]
